FAERS Safety Report 22012643 (Version 2)
Quarter: 2023Q2

REPORT INFORMATION
  Report Type: Spontaneous
  Country: US (occurrence: US)
  Receive Date: 20230220
  Receipt Date: 20230410
  Transmission Date: 20230721
  Serious: No
  Sender: FDA-Public Use
  Company Number: US-ALXN-A202302125

PATIENT
  Sex: Female

DRUGS (3)
  1. ULTOMIRIS [Suspect]
     Active Substance: RAVULIZUMAB-CWVZ
     Indication: Product used for unknown indication
     Dosage: UNK
     Route: 065
  2. SOLIRIS [Suspect]
     Active Substance: ECULIZUMAB
     Indication: Product used for unknown indication
     Dosage: UNK
     Route: 065
  3. EFGARTIGIMOD ALFA [Suspect]
     Active Substance: EFGARTIGIMOD ALFA
     Indication: Product used for unknown indication
     Dosage: UNK
     Route: 065

REACTIONS (2)
  - Therapeutic response shortened [Unknown]
  - Dysphagia [Unknown]
